FAERS Safety Report 5273784-0 (Version None)
Quarter: 2007Q1

REPORT INFORMATION
  Report Type: 
  Country: None (occurrence: None)
  Receive Date: 20070321
  Receipt Date: 20070321
  Transmission Date: 20070707
  Serious: Yes (Life-Threatening, Hospitalization)
  Sender: FDA-Public Use
  Company Number: None

PATIENT
  Age: 54 Year
  Sex: Male
  Weight: 99.7913 kg

DRUGS (1)
  1. COLCHICINE 6MG MERCK [Suspect]
     Indication: GOUT
     Dosage: 1 TABLET  EVERY HOUR
     Dates: start: 20070313, end: 20070314

REACTIONS (6)
  - ASTHENIA [None]
  - DIARRHOEA [None]
  - MOBILITY DECREASED [None]
  - NAUSEA [None]
  - NO THERAPEUTIC RESPONSE [None]
  - VOMITING [None]
